FAERS Safety Report 24374695 (Version 1)
Quarter: 2024Q3

REPORT INFORMATION
  Report Type: Spontaneous
  Country: US (occurrence: US)
  Receive Date: 20240927
  Receipt Date: 20240927
  Transmission Date: 20241017
  Serious: No
  Sender: SANOFI AVENTIS
  Company Number: US-SA-2024SA277485

PATIENT
  Age: 25 Year
  Sex: Female

DRUGS (18)
  1. DUPIXENT [Suspect]
     Active Substance: DUPILUMAB
     Indication: Dermatitis atopic
     Dosage: 300 MG, QOW
     Route: 003
     Dates: start: 2023
  2. ABILIFY [Concomitant]
     Active Substance: ARIPIPRAZOLE
  3. BROMOCRIPTINE [Concomitant]
     Active Substance: BROMOCRIPTINE
  4. PROCHLORPERAZINE [Concomitant]
     Active Substance: PROCHLORPERAZINE
  5. LITHIUM [Concomitant]
     Active Substance: LITHIUM
  6. METOPROLOL SUCCINATE [Concomitant]
     Active Substance: METOPROLOL SUCCINATE
  7. ACETYLCYSTEINE [Concomitant]
     Active Substance: ACETYLCYSTEINE
  8. NEXPLANON [Concomitant]
     Active Substance: ETONOGESTREL
  9. PROTONIX [Concomitant]
     Active Substance: PANTOPRAZOLE SODIUM
  10. SPIRONOLACTONE [Concomitant]
     Active Substance: SPIRONOLACTONE
  11. PEPCID [Concomitant]
     Active Substance: FAMOTIDINE
  12. QULIPTA [Concomitant]
     Active Substance: ATOGEPANT
  13. VISTARIL [Concomitant]
     Active Substance: HYDROXYZINE PAMOATE
  14. VITAMIN B12 [Concomitant]
     Active Substance: CYANOCOBALAMIN
  15. DESMOPRESSIN [Concomitant]
     Active Substance: DESMOPRESSIN
  16. MIDODRINE [Concomitant]
     Active Substance: MIDODRINE
  17. PRAZOSIN [Concomitant]
     Active Substance: PRAZOSIN\PRAZOSIN HYDROCHLORIDE
  18. BACTRIM DS [Concomitant]
     Active Substance: SULFAMETHOXAZOLE\TRIMETHOPRIM

REACTIONS (3)
  - Vomiting [Unknown]
  - Swelling face [Unknown]
  - Urticaria [Unknown]

NARRATIVE: CASE EVENT DATE: 20240904
